FAERS Safety Report 7767992-4 (Version None)
Quarter: 2011Q3

REPORT INFORMATION
  Report Type: 
  Country: None (occurrence: None)
  Receive Date: 20110922
  Receipt Date: 20110317
  Transmission Date: 20111222
  Serious: No
  Sender: FDA-Public Use
  Company Number: US-ASTRAZENECA-2011SE15141

PATIENT
  Age: 80 Year
  Sex: Female

DRUGS (2)
  1. AMBIEN [Concomitant]
  2. SEROQUEL [Suspect]
     Route: 048
     Dates: start: 20100401

REACTIONS (7)
  - DRUG DOSE OMISSION [None]
  - CONSTIPATION [None]
  - FALL [None]
  - NO ADVERSE EVENT [None]
  - MEMORY IMPAIRMENT [None]
  - DIZZINESS [None]
  - THERAPEUTIC RESPONSE UNEXPECTED [None]
